FAERS Safety Report 8834664 (Version 2)
Quarter: 2015Q2

REPORT INFORMATION
  Report Type: Report from Study
  Country: US (occurrence: US)
  Receive Date: 20121010
  Receipt Date: 20150416
  Transmission Date: 20150821
  Serious: Yes (Death, Hospitalization, Other)
  Sender: FDA-Public Use
  Company Number: US-ROCHE-1123477

PATIENT
  Age: 74 Year
  Sex: Male

DRUGS (19)
  1. ACETAMINOPHEN. [Concomitant]
     Active Substance: ACETAMINOPHEN
     Route: 048
  2. BENADRYL [Concomitant]
     Active Substance: DIPHENHYDRAMINE HYDROCHLORIDE
     Route: 042
  3. ATENOLOL. [Concomitant]
     Active Substance: ATENOLOL
  4. RITUXAN [Suspect]
     Active Substance: RITUXIMAB
     Indication: HAIRY CELL LEUKAEMIA
     Route: 042
     Dates: start: 20051110
  5. ACETAMINOPHEN. [Concomitant]
     Active Substance: ACETAMINOPHEN
     Route: 048
  6. BENADRYL [Concomitant]
     Active Substance: DIPHENHYDRAMINE HYDROCHLORIDE
     Route: 042
  7. DEMEROL [Concomitant]
     Active Substance: MEPERIDINE HYDROCHLORIDE
     Route: 042
  8. DEMEROL [Concomitant]
     Active Substance: MEPERIDINE HYDROCHLORIDE
     Route: 042
  9. PROCRIT [Concomitant]
     Active Substance: ERYTHROPOIETIN
     Route: 058
  10. ALLOPURINOL. [Concomitant]
     Active Substance: ALLOPURINOL
     Route: 048
  11. CYTOXAN [Concomitant]
     Active Substance: CYCLOPHOSPHAMIDE
  12. CLADRIBINE. [Concomitant]
     Active Substance: CLADRIBINE
     Route: 065
     Dates: start: 20050121
  13. ARANESP [Concomitant]
     Active Substance: DARBEPOETIN ALFA
     Route: 058
  14. HYDROCHLOROTHIAZIDE. [Concomitant]
     Active Substance: HYDROCHLOROTHIAZIDE
  15. MEPERIDINE [Concomitant]
     Active Substance: MEPERIDINE
     Route: 042
  16. PENTOSTATIN. [Concomitant]
     Active Substance: PENTOSTATIN
  17. ARANESP [Concomitant]
     Active Substance: DARBEPOETIN ALFA
     Route: 065
  18. FLOMAX (UNITED STATES) [Concomitant]
     Route: 065
  19. LEVAQUIN [Concomitant]
     Active Substance: LEVOFLOXACIN

REACTIONS (21)
  - Death [Fatal]
  - Weight decreased [Recovering/Resolving]
  - Drug hypersensitivity [Unknown]
  - Liver function test abnormal [Recovering/Resolving]
  - Lymphadenopathy [Recovering/Resolving]
  - Leukaemia recurrent [Unknown]
  - Musculoskeletal pain [Recovered/Resolved]
  - Bone pain [Unknown]
  - Anaemia [Unknown]
  - Pyrexia [Recovered/Resolved]
  - Blood bilirubin increased [Unknown]
  - Back pain [Recovered/Resolved]
  - Thrombocytopenia [Recovered/Resolved]
  - Dizziness [Unknown]
  - Febrile neutropenia [Recovered/Resolved]
  - Fatigue [Unknown]
  - Decreased appetite [Unknown]
  - Off label use [Unknown]
  - Hypotension [Recovering/Resolving]
  - Chills [Unknown]
  - Cough [Unknown]

NARRATIVE: CASE EVENT DATE: 20060215
